FAERS Safety Report 6111924-1 (Version None)
Quarter: 2009Q1

REPORT INFORMATION
  Report Type: 
  Country: None (occurrence: None)
  Receive Date: 20090311
  Receipt Date: 20090303
  Transmission Date: 20090719
  Serious: Yes (Other)
  Sender: FDA-Public Use
  Company Number: US-GENENTECH-278593

PATIENT
  Sex: Male

DRUGS (2)
  1. AVASTIN [Suspect]
     Indication: GLIOBLASTOMA MULTIFORME
     Dosage: 15 MG/KG, Q3W
  2. TEMODAR [Concomitant]
     Indication: GLIOBLASTOMA MULTIFORME

REACTIONS (1)
  - CONVULSION [None]
